FAERS Safety Report 6604572-8 (Version None)
Quarter: 2010Q1

REPORT INFORMATION
  Report Type: 
  Country: None (occurrence: None)
  Receive Date: 20100226
  Receipt Date: 20091203
  Transmission Date: 20100710
  Serious: Yes (Other)
  Sender: FDA-Public Use
  Company Number: A0833188A

PATIENT
  Age: 22 Year
  Sex: Female

DRUGS (5)
  1. LAMICTAL CD [Suspect]
     Route: 048
     Dates: start: 20090915, end: 20091010
  2. SYNTHROID [Concomitant]
  3. VITAMIN D [Concomitant]
  4. LITHIUM [Concomitant]
  5. MULTI B VITAMIN SUPPLEMENT [Concomitant]

REACTIONS (4)
  - CONVULSION [None]
  - DISABILITY [None]
  - DISCOMFORT [None]
  - URTICARIA [None]
